FAERS Safety Report 12570199 (Version 3)
Quarter: 2016Q3

REPORT INFORMATION
  Report Type: Spontaneous
  Country: FR (occurrence: FR)
  Receive Date: 20160719
  Receipt Date: 20160805
  Transmission Date: 20161109
  Serious: Yes (Life-Threatening, Hospitalization)
  Sender: FDA-Public Use
  Company Number: FR-B.I. PHARMACEUTICALS,INC./RIDGEFIELD-2016-BI-46869FF

PATIENT
  Age: 65 Year
  Sex: Male

DRUGS (1)
  1. PRADAXA [Suspect]
     Active Substance: DABIGATRAN ETEXILATE MESYLATE
     Indication: ATRIAL FIBRILLATION
     Route: 065

REACTIONS (7)
  - Coma [Recovered/Resolved with Sequelae]
  - Fall [Recovered/Resolved with Sequelae]
  - Anaemia [Recovered/Resolved]
  - Subdural haematoma [Recovered/Resolved with Sequelae]
  - Haemothorax [Unknown]
  - Cerebral haematoma [Recovered/Resolved with Sequelae]
  - Head injury [Recovered/Resolved with Sequelae]

NARRATIVE: CASE EVENT DATE: 20160627
